FAERS Safety Report 10264172 (Version 1)
Quarter: 2014Q2

REPORT INFORMATION
  Report Type: Spontaneous
  Country: GB (occurrence: None)
  Receive Date: 20140624
  Receipt Date: 20140624
  Transmission Date: 20141212
  Serious: Yes (Life-Threatening, Hospitalization)
  Sender: FDA-Public Use
  Company Number: AUR-APL-2014-06587

PATIENT
  Age: 88 Year
  Sex: Female

DRUGS (5)
  1. AMOXICILLIN [Suspect]
     Indication: PNEUMONIA
     Route: 048
     Dates: start: 20140531, end: 20140531
  2. CLARITHROMYCIN [Suspect]
     Indication: PNEUMONIA
     Route: 048
     Dates: start: 20140531, end: 20140531
  3. AMOXIL /00249601/ [Suspect]
     Indication: PRODUCT USED FOR UNKNOWN INDICATION
  4. AUGMENTIN [Suspect]
     Indication: PNEUMONIA
     Route: 042
     Dates: start: 20140530, end: 20140530
  5. CLARITHROMYCIN (CLARITHROMYCIN) [Suspect]
     Indication: PNEUMONIA
     Route: 042
     Dates: start: 20140530, end: 20140530

REACTIONS (4)
  - Pallor [None]
  - Rash [None]
  - Pain in extremity [None]
  - Malaise [None]
